FAERS Safety Report 9437210 (Version 2)
Quarter: 2014Q2

REPORT INFORMATION
  Report Type: Report from Study
  Country: CA (occurrence: CA)
  Receive Date: 20130802
  Receipt Date: 20140506
  Transmission Date: 20141212
  Serious: Yes (Other)
  Sender: FDA-Public Use
  Company Number: PHHY2013CA043410

PATIENT
  Age: 46 Year
  Sex: Male

DRUGS (2)
  1. TASIGNA [Suspect]
     Indication: CHRONIC MYELOID LEUKAEMIA
     Dosage: 300 MG, BID
     Route: 048
     Dates: start: 201204, end: 201401
  2. ATOVAQUONE [Concomitant]
     Indication: PROPHYLAXIS

REACTIONS (9)
  - Loss of consciousness [Unknown]
  - Erectile dysfunction [Unknown]
  - Anaemia [Unknown]
  - Red blood cell count decreased [Unknown]
  - Dizziness [Unknown]
  - Hot flush [Unknown]
  - Arthralgia [Unknown]
  - Back pain [Unknown]
  - Night sweats [Unknown]
